FAERS Safety Report 8613285-2 (Version None)
Quarter: 2012Q3

REPORT INFORMATION
  Report Type: 
  Country: None (occurrence: None)
  Receive Date: 20120822
  Receipt Date: 20120719
  Transmission Date: 20120928
  Serious: No
  Sender: FDA-Public Use
  Company Number: US-009507513-1206USA03507

PATIENT

DRUGS (4)
  1. COSOPT [Suspect]
     Indication: GLAUCOMA
     Dosage: 2 GTT, QD
     Route: 047
     Dates: start: 20010101
  2. PRED FORTE [Concomitant]
  3. METFORMIN [Concomitant]
  4. PROPYLENE GLYCOL [Concomitant]

REACTIONS (2)
  - EYE IRRITATION [None]
  - GLAUCOMA [None]
